FAERS Safety Report 5421555-4 (Version None)
Quarter: 2007Q3

REPORT INFORMATION
  Report Type: 
  Country: None (occurrence: None)
  Receive Date: 20070726
  Receipt Date: 20070111
  Transmission Date: 20080115
  Serious: Yes (Other)
  Sender: FDA-Public Use
  Company Number: US200701002445

PATIENT
  Sex: Female

DRUGS (3)
  1. FORTEO [Suspect]
     Indication: OSTEOPOROSIS
     Dates: start: 20061121
  2. WARFARIN SODIUM [Concomitant]
  3. AMIODARONE HCL [Concomitant]

REACTIONS (21)
  - ABDOMINAL PAIN [None]
  - CONFUSIONAL STATE [None]
  - CONTUSION [None]
  - COORDINATION ABNORMAL [None]
  - DEPRESSED MOOD [None]
  - DIZZINESS [None]
  - DYSPNOEA [None]
  - EYE DISORDER [None]
  - FALL [None]
  - HAEMOPTYSIS [None]
  - HAEMORRHAGE [None]
  - HEAD INJURY [None]
  - HEADACHE [None]
  - JOINT INJURY [None]
  - MUSCULOSKELETAL DISCOMFORT [None]
  - OCULAR HYPERAEMIA [None]
  - OEDEMA PERIPHERAL [None]
  - PERIORBITAL HAEMATOMA [None]
  - STOMACH DISCOMFORT [None]
  - VEIN DISORDER [None]
  - VISUAL ACUITY REDUCED [None]
